FAERS Safety Report 17845866 (Version 1)
Quarter: 2020Q2

REPORT INFORMATION
  Report Type: Spontaneous
  Country: BR (occurrence: BR)
  Receive Date: 20200601
  Receipt Date: 20200601
  Transmission Date: 20200714
  Serious: Yes (Other)
  Sender: FDA-Public Use
  Company Number: BR-009507513-2005BRA010073

PATIENT
  Age: 95 Year
  Sex: Female
  Weight: 55 kg

DRUGS (2)
  1. NITES [Suspect]
     Active Substance: MOMETASONE FUROATE
     Indication: NASAL OBSTRUCTION
  2. NITES [Suspect]
     Active Substance: MOMETASONE FUROATE
     Indication: INCREASED UPPER AIRWAY SECRETION
     Dosage: ONCE DAILY
     Route: 055
     Dates: start: 20200527, end: 202005

REACTIONS (6)
  - Product prescribing issue [Unknown]
  - Blood pressure increased [Recovered/Resolved]
  - Hypertension [Not Recovered/Not Resolved]
  - Product use in unapproved indication [Unknown]
  - Diabetes mellitus [Not Recovered/Not Resolved]
  - Tremor [Not Recovered/Not Resolved]

NARRATIVE: CASE EVENT DATE: 20200527
